FAERS Safety Report 8771464 (Version 1)
Quarter: 2012Q4

REPORT INFORMATION
  Report Type: 
  Country: US (occurrence: US)
  Receive Date: 20120905
  Receipt Date: 20120905
  Transmission Date: 20130627
  Serious: Yes (Other)
  Sender: FDA-Public Use
  Company Number: CHPA2012US018917

PATIENT
  Sex: Female

DRUGS (1)
  1. NUPERCAINAL [Suspect]
     Indication: HAEMORRHOIDS
     Dosage: 1/2 inch, Unk
     Route: 061
     Dates: start: 1957

REACTIONS (3)
  - Hypertension [Not Recovered/Not Resolved]
  - Abortion spontaneous [Recovered/Resolved]
  - Maternal exposure during pregnancy [Recovered/Resolved]
